FAERS Safety Report 8118541-2 (Version None)
Quarter: 2012Q1

REPORT INFORMATION
  Report Type: 
  Country: None (occurrence: None)
  Receive Date: 20120207
  Receipt Date: 20120201
  Transmission Date: 20120608
  Serious: Yes (Hospitalization, Other)
  Sender: FDA-Public Use
  Company Number: FR-SANOFI-AVENTIS-2011SA069187

PATIENT
  Age: 57 Year
  Sex: Female
  Weight: 82 kg

DRUGS (9)
  1. LOVENOX [Suspect]
     Route: 058
     Dates: start: 20101012
  2. LOVENOX [Suspect]
     Indication: PULMONARY EMBOLISM
     Route: 058
     Dates: start: 20101011, end: 20101011
  3. LERCANIDIPINE [Concomitant]
     Route: 048
     Dates: end: 20101001
  4. LOVENOX [Suspect]
     Route: 058
     Dates: start: 20101012
  5. PROPRANOLOL [Concomitant]
  6. SECTRAL [Concomitant]
     Route: 048
  7. LOVENOX [Suspect]
     Route: 058
     Dates: start: 20101011, end: 20101011
  8. PREVISCAN [Suspect]
     Dosage: THERAPEUTIC AREA BETWEEN 2 AND 3
     Route: 065
     Dates: start: 20101011, end: 20101023
  9. LERCANIDIPINE [Concomitant]
     Dates: start: 20101001

REACTIONS (6)
  - MOTOR DYSFUNCTION [None]
  - INJECTION SITE HAEMATOMA [None]
  - PAIN [None]
  - HYPOAESTHESIA [None]
  - PARAESTHESIA [None]
  - MUSCLE HAEMORRHAGE [None]
